FAERS Safety Report 8309673-4 (Version None)
Quarter: 2012Q2

REPORT INFORMATION
  Report Type: 
  Country: None (occurrence: None)
  Receive Date: 20120423
  Receipt Date: 20120406
  Transmission Date: 20120825
  Serious: Yes (Hospitalization, Other)
  Sender: FDA-Public Use
  Company Number: GER/GER/12/0023645

PATIENT
  Age: 68 Year
  Sex: Male
  Weight: 80 kg

DRUGS (4)
  1. LYRICA [Suspect]
     Indication: PRODUCT USED FOR UNKNOWN INDICATION
     Dosage: 1500 MG, 1 IN 1 TOTAL, ORAL
     Route: 048
     Dates: start: 20120326
  2. SIMVASTATIN [Suspect]
     Indication: PRODUCT USED FOR UNKNOWN INDICATION
     Dosage: 400 MG, 1 IN 1 TOTAL, ORAL
     Route: 048
     Dates: start: 20120326
  3. RAMIPRIL [Suspect]
     Indication: PRODUCT USED FOR UNKNOWN INDICATION
     Dosage: 50 MG, 1 IN 1 TOTAL, ORAL
     Dates: start: 20120326
  4. CORVATON RETARD 8 (MOLSIDOMINE) [Suspect]
     Indication: PRODUCT USED FOR UNKNOWN INDICATION
     Dosage: 80 MG, 1 IN 1 TOTAL, ORAL
     Route: 048
     Dates: start: 20120326

REACTIONS (1)
  - MULTIPLE DRUG OVERDOSE INTENTIONAL [None]
